FAERS Safety Report 24695716 (Version 2)
Quarter: 2024Q4

REPORT INFORMATION
  Report Type: Spontaneous
  Country: US (occurrence: US)
  Receive Date: 20241204
  Receipt Date: 20241223
  Transmission Date: 20250114
  Serious: Yes (Other)
  Sender: ADVANZ PHARMA
  Company Number: US-MLMSERVICE-20241115-PI259352-00232-1

PATIENT

DRUGS (2)
  1. HYDROXYCHLOROQUINE [Suspect]
     Active Substance: HYDROXYCHLOROQUINE
     Indication: Systemic lupus erythematosus
     Dosage: UNK
  2. MYCOPHENOLATE MOFETIL [Suspect]
     Active Substance: MYCOPHENOLATE MOFETIL
     Indication: Systemic lupus erythematosus
     Dosage: UNK

REACTIONS (9)
  - Cytomegalovirus viraemia [Unknown]
  - Focal segmental glomerulosclerosis [Unknown]
  - Kidney fibrosis [Unknown]
  - Renal tubular atrophy [Unknown]
  - Acute kidney injury [Unknown]
  - Dyspnoea [Unknown]
  - Pyrexia [Unknown]
  - Pancytopenia [Unknown]
  - Diarrhoea [Unknown]
